FAERS Safety Report 19611148 (Version 1)
Quarter: 2021Q3

REPORT INFORMATION
  Report Type: Spontaneous
  Country: US (occurrence: US)
  Receive Date: 20210726
  Receipt Date: 20210726
  Transmission Date: 20211014
  Serious: Yes (Hospitalization)
  Sender: FDA-Public Use
  Company Number: US-G1-000312

PATIENT
  Age: 77 Year
  Sex: Female
  Weight: 46.5 kg

DRUGS (1)
  1. COSELA [Suspect]
     Active Substance: TRILACICLIB DIHYDROCHLORIDE
     Indication: INFECTION PROPHYLAXIS
     Dosage: TIME INTERVAL: TOTAL; 374 MG ONCE
     Route: 042
     Dates: start: 20210628, end: 20210628

REACTIONS (1)
  - Dyspnoea [Unknown]

NARRATIVE: CASE EVENT DATE: 20210628
